FAERS Safety Report 23911379 (Version 1)
Quarter: 2024Q2

REPORT INFORMATION
  Report Type: Spontaneous
  Country: DE (occurrence: DE)
  Receive Date: 20240528
  Receipt Date: 20240528
  Transmission Date: 20240716
  Serious: Yes (Other)
  Sender: FDA-Public Use
  Company Number: DE-WOODWARD-2024-DE-000069

PATIENT
  Age: 51 Year
  Sex: Male

DRUGS (20)
  1. RABEPRAZOLE SODIUM [Suspect]
     Active Substance: RABEPRAZOLE SODIUM
     Indication: Gastric pH increased
     Dosage: 20.0 MILLIGRAM(S) (20 MILLIGRAM(S), 1 IN 1 DAY)
     Route: 048
  2. CLOZAPINE [Suspect]
     Active Substance: CLOZAPINE
     Dosage: DOSE AND FREQUENCY UNKNOWN
  3. NAPROXEN [Suspect]
     Active Substance: NAPROXEN
     Dosage: 500 MG AS NECESSARY
  4. NEBIVOLOL [Suspect]
     Active Substance: NEBIVOLOL
     Dosage: 5.0 MILLIGRAM(S) (2.5 MILLIGRAM(S), 1 IN 12 HOUR)
  5. SILDENAFIL [Suspect]
     Active Substance: SILDENAFIL
     Dosage: DOSE AND FREQUENCY UNKNOWN
  6. ZYPREXA [Suspect]
     Active Substance: OLANZAPINE
     Dosage: DOSE AND FREQUENCY UNKNOWN
  7. TAVOR (LORAZEPAM) [Suspect]
     Active Substance: LORAZEPAM
     Dosage: 1MG IF NECESSARY
  8. CANDESARTAN [Suspect]
     Active Substance: CANDESARTAN
     Dosage: MORNING 8MG, AFTERNOON 4MG
  9. ZELDOX [Suspect]
     Active Substance: ZIPRASIDONE
     Dosage: DOSE AND FREQUENCY UNKNOWN
  10. FLUPENTIXOL [Suspect]
     Active Substance: FLUPENTIXOL
     Dosage: MORNING: 5MG; EVENING: 6 MG; NIGHT: 2MG
  11. CHLORPROTHIXENE [Suspect]
     Active Substance: CHLORPROTHIXENE
     Dosage: 100.0 MILLIGRAM(S) (100 MILLIGRAM(S), 1 IN 1 DAY)
  12. CARIPRAZINE [Suspect]
     Active Substance: CARIPRAZINE
     Dosage: DOSE AND FREQUENCY UNKNOWN
  13. ISOPROMETHAZINE HYDROCHLORIDE [Suspect]
     Active Substance: ISOPROMETHAZINE HYDROCHLORIDE
     Dosage: (37.5 MILLIGRAM(S)), (25 MILLIGRAM(S))
  14. BROMAZEPAM [Suspect]
     Active Substance: BROMAZEPAM
     Dosage: 3MG AS NECESSARY FOR SEDATION/ANXIETY
  15. MELATONIN [Suspect]
     Active Substance: MELATONIN
     Dosage: DOSE AND FREQUENCY UNKNOWN
  16. ABILIFY [Suspect]
     Active Substance: ARIPIPRAZOLE
     Dosage: DOSE AND FREQUENCY UNKNOWN
  17. RAMIPRIL [Suspect]
     Active Substance: RAMIPRIL
     Dosage: DOSE AND FREQUENCY UNKNOWN
  18. SEROQUEL [Suspect]
     Active Substance: QUETIAPINE FUMARATE
     Dosage: 100.0 MILLIGRAM(S) (100 MILLIGRAM(S), 1 IN 1 DAY); 25-50MG IF NECESSARY
  19. PROPRANOLOL [Suspect]
     Active Substance: PROPRANOLOL HYDROCHLORIDE
     Dosage: DOSE AND FREQUENCY UNKNOWN
  20. RISPERDAL [Suspect]
     Active Substance: RISPERIDONE
     Dosage: 2.0 MILLIGRAM(S) (2 MILLIGRAM(S), 1 IN 1 DAY); MORNING 4MG, NIGHT 5MG

REACTIONS (8)
  - Suicidal ideation [Unknown]
  - Drug interaction [Unknown]
  - Brain fog [Unknown]
  - Blood pressure increased [Unknown]
  - Dizziness [Unknown]
  - Somnolence [Unknown]
  - Flatulence [Unknown]
  - Parkinsonism [Unknown]
